FAERS Safety Report 24140543 (Version 3)
Quarter: 2025Q4

REPORT INFORMATION
  Report Type: Spontaneous
  Country: EU (occurrence: EU)
  Receive Date: 20240726
  Receipt Date: 20251001
  Transmission Date: 20260118
  Serious: Yes (Hospitalization, Other)
  Sender: AUROBINDO
  Company Number: EU-ACRAF SpA-2024-035047

PATIENT
  Age: 26 Year
  Sex: Male

DRUGS (18)
  1. LACOSAMIDE [Suspect]
     Active Substance: LACOSAMIDE
     Indication: Product used for unknown indication
     Dosage: 100 MILLIGRAM, ONCE A DAY
     Route: 065
     Dates: start: 20240603, end: 20240724
  2. LACOSAMIDE [Suspect]
     Active Substance: LACOSAMIDE
     Dosage: 50-0-100MG
     Route: 065
     Dates: start: 20240723, end: 20240724
  3. LACOSAMIDE [Suspect]
     Active Substance: LACOSAMIDE
     Dosage: 100 MILLIGRAM, ONCE A DAY
     Route: 065
     Dates: start: 20240724
  4. CLOBAZAM [Suspect]
     Active Substance: CLOBAZAM
     Indication: Epilepsy
     Dosage: FU1: 10-0-15. AFTER 5 DAYS HE WAS ADVISED TO REDUCE TO 5-0- 15 AND THEN TO 0-0-15MG. IF DROWSINESS P
     Route: 065
  5. CLOBAZAM [Suspect]
     Active Substance: CLOBAZAM
     Dosage: FU5: 5-5-5MG
     Route: 065
  6. CENOBAMATE [Suspect]
     Active Substance: CENOBAMATE
     Indication: Epilepsy
     Dosage: 50 MILLIGRAM, ONCE A DAY
     Route: 048
     Dates: start: 20240603
  7. CENOBAMATE [Suspect]
     Active Substance: CENOBAMATE
     Dosage: 200 MILLIGRAM, ONCE A DAY
     Route: 048
  8. CENOBAMATE [Suspect]
     Active Substance: CENOBAMATE
     Dosage: 250 MILLIGRAM, ONCE A DAY
     Route: 048
  9. CENOBAMATE [Suspect]
     Active Substance: CENOBAMATE
     Dosage: 300 MILLIGRAM, ONCE A DAY
     Route: 048
  10. CENOBAMATE [Suspect]
     Active Substance: CENOBAMATE
     Dosage: 225 MILLIGRAM, ONCE A DAY
     Route: 048
     Dates: start: 20250411
  11. CENOBAMATE [Suspect]
     Active Substance: CENOBAMATE
     Dosage: 212.5 MILLIGRAM, ONCE A DAY
     Route: 048
     Dates: start: 20250411
  12. CANNABIDIOL [Suspect]
     Active Substance: CANNABIDIOL
     Indication: Epilepsy
     Dosage: 5.5 MILLIGRAM, ONCE A DAY (5.5-0-5.5)
     Route: 065
  13. CANNABIDIOL [Suspect]
     Active Substance: CANNABIDIOL
     Dosage: 400 MILLIGRAM, ONCE A DAY (400-0-400)
     Route: 065
  14. VALPROATE SODIUM [Suspect]
     Active Substance: VALPROATE SODIUM
     Indication: Epilepsy
     Dosage: 300 MILLIGRAM, ONCE A DAY (300-0-300)
     Route: 065
  15. VALPROATE SODIUM [Suspect]
     Active Substance: VALPROATE SODIUM
     Dosage: 200 MILLIGRAM, ONCE A DAY (200-200-200)
     Route: 065
  16. BRIVIACT [Suspect]
     Active Substance: BRIVARACETAM
     Indication: Epilepsy
     Dosage: 300 MILLIGRAM, ONCE A DAY (300-0-300)
     Route: 065
  17. BRIVIACT [Suspect]
     Active Substance: BRIVARACETAM
     Dosage: 100 MILLIGRAM, ONCE A DAY (100-0-100)
     Route: 065
  18. ESLICARBAZEPINE ACETATE [Suspect]
     Active Substance: ESLICARBAZEPINE ACETATE
     Indication: Epilepsy
     Dosage: 0-0-0,5 TABLETS
     Route: 065

REACTIONS (13)
  - Status epilepticus [Recovered/Resolved]
  - Seizure [Unknown]
  - Weight decreased [Not Recovered/Not Resolved]
  - Decreased appetite [Not Recovered/Not Resolved]
  - Somnolence [Unknown]
  - Constipation [Not Recovered/Not Resolved]
  - Sluggishness [Not Recovered/Not Resolved]
  - Fatigue [Not Recovered/Not Resolved]
  - Asthenia [Not Recovered/Not Resolved]
  - Vomiting [Not Recovered/Not Resolved]
  - Nausea [Recovered/Resolved]
  - Drug interaction [Not Recovered/Not Resolved]
  - Off label use [Not Recovered/Not Resolved]

NARRATIVE: CASE EVENT DATE: 20240603
